FAERS Safety Report 18160198 (Version 1)
Quarter: 2020Q3

REPORT INFORMATION
  Report Type: Spontaneous
  Country: US (occurrence: US)
  Receive Date: 20200818
  Receipt Date: 20200818
  Transmission Date: 20201103
  Serious: No
  Sender: FDA-Public Use
  Company Number: US-ASTRAZENECA-2020SF03277

PATIENT
  Age: 72 Year
  Sex: Female
  Weight: 63.5 kg

DRUGS (1)
  1. ESOMEPRAZOLE MAGNESIUM. [Suspect]
     Active Substance: ESOMEPRAZOLE MAGNESIUM
     Indication: ACQUIRED OESOPHAGEAL WEB
     Dosage: UNK, DAILY (BEFORE MEAL)
     Route: 048
     Dates: start: 202007, end: 202007

REACTIONS (4)
  - Head injury [Unknown]
  - Product use issue [Unknown]
  - Vertigo [Recovered/Resolved]
  - Fall [Unknown]

NARRATIVE: CASE EVENT DATE: 202007
